FAERS Safety Report 6267156-X (Version None)
Quarter: 2009Q3

REPORT INFORMATION
  Report Type: 
  Country: None (occurrence: None)
  Receive Date: 20090714
  Receipt Date: 20080728
  Transmission Date: 20100115
  Serious: No
  Sender: FDA-Public Use
  Company Number: US-ABBOTT-08P-163-0466163-00

PATIENT
  Sex: Female
  Weight: 68.1 kg

DRUGS (8)
  1. K-TAB [Suspect]
     Indication: MINERAL SUPPLEMENTATION
     Route: 048
     Dates: start: 20080611
  2. LORAZEPAM [Concomitant]
     Indication: ANXIETY
     Dosage: 1 MG 1/2 TAB BID
     Route: 048
     Dates: start: 20080201
  3. GABAPENTIN [Concomitant]
     Indication: ANXIETY
     Route: 048
     Dates: start: 20080601
  4. TRAZODONE [Concomitant]
     Indication: INSOMNIA
     Route: 048
     Dates: start: 20080201
  5. FLUDROCORTISONE ACETATE [Concomitant]
     Indication: SYNCOPE
     Route: 048
     Dates: start: 20080512
  6. MIDODRINE [Concomitant]
     Indication: SYNCOPE
     Dosage: 5MG 2.5MG BID
     Route: 048
     Dates: start: 20080512
  7. OTC ADVANCE DIGESTIVE [Concomitant]
     Indication: IRRITABLE BOWEL SYNDROME
     Route: 048
     Dates: start: 20080707
  8. CHEWABLE MULTIVITAMIN [Concomitant]
     Indication: VITAMIN SUPPLEMENTATION
     Route: 048

REACTIONS (1)
  - MEDICATION RESIDUE [None]
